FAERS Safety Report 13293447 (Version 1)
Quarter: 2017Q1

REPORT INFORMATION
  Report Type: Spontaneous
  Country: JP (occurrence: JP)
  Receive Date: 20170303
  Receipt Date: 20170303
  Transmission Date: 20170428
  Serious: Yes (Hospitalization)
  Sender: FDA-Public Use
  Company Number: JP-ASTRAZENECA-2017SE22454

PATIENT
  Age: 82 Year

DRUGS (2)
  1. WARFARIN [Concomitant]
     Active Substance: WARFARIN
  2. IRESSA [Suspect]
     Active Substance: GEFITINIB
     Indication: LUNG ADENOCARCINOMA
     Route: 048
     Dates: start: 20170130, end: 20170212

REACTIONS (8)
  - International normalised ratio increased [Recovered/Resolved]
  - Mouth haemorrhage [Recovered/Resolved]
  - Anaemia [Unknown]
  - Haematuria [Unknown]
  - Diarrhoea [Recovered/Resolved]
  - Asthenia [Unknown]
  - Faeces discoloured [Unknown]
  - Renal impairment [Unknown]

NARRATIVE: CASE EVENT DATE: 201702
